FAERS Safety Report 7712487-7 (Version None)
Quarter: 2011Q3

REPORT INFORMATION
  Report Type: 
  Country: None (occurrence: None)
  Receive Date: 20110826
  Receipt Date: 20110826
  Transmission Date: 20111222
  Serious: No
  Sender: FDA-Public Use
  Company Number: None

PATIENT
  Age: 54 Year
  Sex: Female
  Weight: 83.914 kg

DRUGS (1)
  1. WELCHOL [Suspect]

REACTIONS (2)
  - INSOMNIA [None]
  - PAIN IN EXTREMITY [None]
